FAERS Safety Report 10568057 (Version 2)
Quarter: 2014Q4

REPORT INFORMATION
  Report Type: Spontaneous
  Country: JP (occurrence: None)
  Receive Date: 20141104
  Receipt Date: 20141117
  Transmission Date: 20150529
  Serious: Yes (Other)
  Sender: FDA-Public Use
  Company Number: JP-017534

PATIENT
  Age: 35 Year
  Sex: Female

DRUGS (2)
  1. CLOMIPHENE [Suspect]
     Active Substance: CLOMIPHENE
     Indication: OVULATION INDUCTION
  2. GONALEF [Suspect]
     Active Substance: FOLLITROPIN
     Indication: OVULATION INDUCTION

REACTIONS (6)
  - Adnexal torsion [None]
  - Abdominal pain [None]
  - Abortion spontaneous [None]
  - Pregnancy [None]
  - Ovarian hyperstimulation syndrome [None]
  - Exposure during pregnancy [None]
